FAERS Safety Report 12378014 (Version 1)
Quarter: 2016Q2

REPORT INFORMATION
  Report Type: Spontaneous
  Country: US (occurrence: US)
  Receive Date: 20160517
  Receipt Date: 20160517
  Transmission Date: 20160815
  Serious: No
  Sender: FDA-Public Use
  Company Number: US-JNJFOC-20160426167

PATIENT
  Age: 4 Month
  Sex: Female
  Weight: 5.44 kg

DRUGS (2)
  1. INFANTS TYLENOL [Suspect]
     Active Substance: ACETAMINOPHEN
     Indication: PYREXIA
     Dosage: AS NEEDED
     Route: 048
     Dates: end: 20160426
  2. INFANTS TYLENOL [Suspect]
     Active Substance: ACETAMINOPHEN
     Indication: TEETHING
     Dosage: AS NEEDED
     Route: 048
     Dates: end: 20160426

REACTIONS (3)
  - Flatulence [Recovering/Resolving]
  - Abdominal pain [Recovering/Resolving]
  - Constipation [Recovering/Resolving]
